FAERS Safety Report 11969589 (Version 1)
Quarter: 2016Q1

REPORT INFORMATION
  Report Type: Spontaneous
  Country: US (occurrence: None)
  Receive Date: 20160127
  Receipt Date: 20160127
  Transmission Date: 20160526
  Serious: No
  Sender: FDA-Public Use
  Company Number: None

PATIENT
  Age: 55 Year
  Sex: Female
  Weight: 56.7 kg

DRUGS (3)
  1. BIAXIN [Concomitant]
     Active Substance: CLARITHROMYCIN
  2. VITAMIN D [Concomitant]
     Active Substance: CHOLECALCIFEROL
  3. OTEZLA [Suspect]
     Active Substance: APREMILAST
     Indication: PSORIASIS
     Dosage: 1 PILL, TWICE DAILY, ORALLY
     Route: 048
     Dates: start: 20151202, end: 20160125

REACTIONS (2)
  - Blood potassium decreased [None]
  - Muscle spasms [None]

NARRATIVE: CASE EVENT DATE: 20151214
